FAERS Safety Report 17612650 (Version 1)
Quarter: 2020Q2

REPORT INFORMATION
  Report Type: Spontaneous
  Country: US (occurrence: US)
  Receive Date: 20200401
  Receipt Date: 20200401
  Transmission Date: 20200713
  Serious: No
  Sender: FDA-Public Use
  Company Number: US-TEVA-2020-US-1216992

PATIENT
  Sex: Female

DRUGS (2)
  1. BACLOFEN. [Suspect]
     Active Substance: BACLOFEN
     Indication: HAND FRACTURE
  2. BACLOFEN. [Suspect]
     Active Substance: BACLOFEN
     Indication: SPINAL FRACTURE
     Dosage: TABLET CAPUSE
     Route: 048

REACTIONS (3)
  - Feeling abnormal [Unknown]
  - Agitation [Unknown]
  - Blood pressure decreased [Unknown]
